FAERS Safety Report 9335601 (Version 3)
Quarter: 2013Q3

REPORT INFORMATION
  Report Type: Spontaneous
  Country: JP (occurrence: JP)
  Receive Date: 20130605
  Receipt Date: 20130701
  Transmission Date: 20140515
  Serious: Yes (Other)
  Sender: FDA-Public Use
  Company Number: JP-PFIZER INC-2013154895

PATIENT
  Age: 80 Year
  Sex: Male

DRUGS (9)
  1. LYRICA [Suspect]
     Indication: PAIN
     Dosage: 50 MG, 1X/DAY
     Route: 048
  2. LYRICA [Interacting]
     Dosage: 100 MG, 1X/DAY
     Route: 048
     Dates: start: 20130411
  3. WARFARIN [Interacting]
     Indication: ATRIAL FIBRILLATION
     Dosage: 2.5 MG, 1X/DAY
     Route: 048
  4. WARFARIN [Interacting]
     Dosage: 3 MG, 1X/DAY
     Route: 048
     Dates: start: 201304
  5. MICARDIS [Suspect]
     Indication: HYPERTENSION
     Dosage: 20 MG, 1X/DAY
  6. NEUROTROPIN [Suspect]
     Indication: PAIN
     Dosage: 4 IU, 1X/DAY
     Route: 048
  7. MOHRUS [Suspect]
     Indication: PAIN
     Dosage: 40 MG, 1X/DAY
     Route: 003
  8. MARZULENE [Suspect]
     Indication: GASTRITIS
     Dosage: 2 G, 1X/DAY
     Route: 048
  9. DYDRENE [Suspect]
     Indication: ANGINA PECTORIS
     Dosage: 27 MG, 1X/DAY
     Route: 003

REACTIONS (1)
  - Drug interaction [Recovered/Resolved]
